FAERS Safety Report 7330897-7 (Version None)
Quarter: 2011Q1

REPORT INFORMATION
  Report Type: 
  Country: None (occurrence: None)
  Receive Date: 20110304
  Receipt Date: 20110222
  Transmission Date: 20110831
  Serious: Yes (Other)
  Sender: FDA-Public Use
  Company Number: CA-JNJFOC-20100703036

PATIENT
  Sex: Male
  Weight: 77.8 kg

DRUGS (9)
  1. RABEPRAZOLE SODIUM [Concomitant]
  2. HORMONE SHOT [Concomitant]
     Route: 050
  3. NAPROXEN [Concomitant]
  4. OXYCET [Concomitant]
     Dosage: AS NECESSARY
  5. METHOTREXATE [Concomitant]
  6. PREDNISONE [Concomitant]
  7. REMICADE [Suspect]
     Indication: RHEUMATOID ARTHRITIS
     Dosage: CURRENT INFUSION NUMBER 31
     Route: 042
  8. ZOPICLONE [Concomitant]
     Dosage: 7.5
  9. EXTRA STRENGTH TYLENOL [Concomitant]

REACTIONS (1)
  - BASAL CELL CARCINOMA [None]
